FAERS Safety Report 10175110 (Version 3)
Quarter: 2014Q2

REPORT INFORMATION
  Report Type: Spontaneous
  Country: BR (occurrence: BR)
  Receive Date: 20140515
  Receipt Date: 20140616
  Transmission Date: 20141212
  Serious: Yes (Disabling, Other)
  Sender: FDA-Public Use
  Company Number: BR-ABBVIE-14P-020-1198651-00

PATIENT
  Age: 46 Year
  Sex: Male
  Weight: 74 kg

DRUGS (4)
  1. HUMIRA [Suspect]
     Indication: PSORIASIS
     Route: 058
     Dates: start: 201302
  2. HUMIRA [Suspect]
     Indication: PSORIASIS
  3. DAIVOBET [Concomitant]
     Indication: PSORIASIS
     Dosage: ONCE A DAY
     Dates: start: 201306
  4. DAIVOBET [Concomitant]
     Indication: PSORIASIS

REACTIONS (6)
  - Abasia [Not Recovered/Not Resolved]
  - Guillain-Barre syndrome [Recovering/Resolving]
  - Demyelination [Recovered/Resolved]
  - Asthenia [Recovering/Resolving]
  - Aphasia [Recovering/Resolving]
  - Diarrhoea [Recovering/Resolving]
